FAERS Safety Report 11151269 (Version 2)
Quarter: 2015Q3

REPORT INFORMATION
  Report Type: Spontaneous
  Country: US (occurrence: US)
  Receive Date: 20150528
  Receipt Date: 20150707
  Transmission Date: 20151125
  Serious: Yes (Disabling, Other)
  Sender: FDA-Public Use
  Company Number: CIO15006306

PATIENT
  Age: 21 Year
  Sex: Female

DRUGS (2)
  1. CREST PRO-HEALTH ANTICAVITY FLUORIDE RINSE [Suspect]
     Active Substance: SODIUM FLUORIDE
     Dosage: UNKNOWN UNKNOWN
     Route: 002
  2. CREST TOOTHPASTE [Concomitant]
     Route: 002

REACTIONS (33)
  - Tongue blistering [Not Recovered/Not Resolved]
  - Lip swelling [Not Recovered/Not Resolved]
  - Lip dry [Not Recovered/Not Resolved]
  - Chapped lips [Not Recovered/Not Resolved]
  - Gastrointestinal disorder [Not Recovered/Not Resolved]
  - Hyperventilation [Recovered/Resolved]
  - Pain [Unknown]
  - Oral mucosal exfoliation [Unknown]
  - Oral pain [Unknown]
  - Tooth disorder [Not Recovered/Not Resolved]
  - Sleep disorder [Unknown]
  - Urticaria [Unknown]
  - Swelling face [Not Recovered/Not Resolved]
  - Oropharyngeal blistering [Not Recovered/Not Resolved]
  - Injury [Not Recovered/Not Resolved]
  - Malaise [Not Recovered/Not Resolved]
  - Chemical burn of gastrointestinal tract [Unknown]
  - Oral discomfort [Unknown]
  - Tooth discolouration [Not Recovered/Not Resolved]
  - Pharyngeal disorder [Not Recovered/Not Resolved]
  - Oral mucosal eruption [Not Recovered/Not Resolved]
  - Blister [Unknown]
  - Chemical burn of respiratory tract [Unknown]
  - Pharyngeal haemorrhage [Unknown]
  - Chills [Recovered/Resolved]
  - Mouth swelling [Not Recovered/Not Resolved]
  - Rash [Not Recovered/Not Resolved]
  - Pharyngeal oedema [Not Recovered/Not Resolved]
  - Mouth haemorrhage [Unknown]
  - Pyrexia [Recovered/Resolved]
  - Plicated tongue [Not Recovered/Not Resolved]
  - Gingival disorder [Not Recovered/Not Resolved]
  - Skin exfoliation [Not Recovered/Not Resolved]

NARRATIVE: CASE EVENT DATE: 201501
